FAERS Safety Report 4414516-5 (Version None)
Quarter: 2004Q2

REPORT INFORMATION
  Report Type: 
  Country: None (occurrence: None)
  Receive Date: 20040630
  Receipt Date: 20040430
  Transmission Date: 20050107
  Serious: Yes (Hospitalization, Other)
  Sender: FDA-Public Use
  Company Number: 2004029467

PATIENT
  Age: 14 Year
  Sex: Male

DRUGS (4)
  1. ZOLOFT [Suspect]
     Indication: DEPRESSION
     Dosage: (1 IN 1 D), ORAL
     Route: 048
     Dates: start: 20031201, end: 20040427
  2. ARIPIPRAZOLE (ARIPIPRAZOLE) [Suspect]
     Indication: ILL-DEFINED DISORDER
     Dosage: 10 (1 IN 1 D), ORAL
     Route: 048
     Dates: start: 20040101, end: 20040101
  3. FEXOFENADINE HYDROCHLORIDE [Concomitant]
  4. FLUTICASONE PROPIONATE [Concomitant]

REACTIONS (5)
  - APATHY [None]
  - DRUG INEFFECTIVE [None]
  - HYPOTHYROIDISM [None]
  - SOMNOLENCE [None]
  - SUICIDE ATTEMPT [None]
